FAERS Safety Report 12252906 (Version 2)
Quarter: 2016Q3

REPORT INFORMATION
  Report Type: Spontaneous
  Country: US (occurrence: US)
  Receive Date: 20160411
  Receipt Date: 20160708
  Transmission Date: 20161109
  Serious: Yes (Hospitalization, Other)
  Sender: FDA-Public Use
  Company Number: US-PFIZER INC-2016203070

PATIENT
  Age: 42 Year
  Sex: Male
  Weight: 140.6 kg

DRUGS (23)
  1. LANOXIN [Concomitant]
     Active Substance: DIGOXIN
     Dosage: 125 UG, (EVERY 48 HRS) EVERY OTHER DAY
  2. VITAMIN D3 [Concomitant]
     Active Substance: CHOLECALCIFEROL
     Dosage: 2000 IU, 1X/DAY ((2000 UNITS); 1 CAP; 9AM)
  3. REVATIO [Suspect]
     Active Substance: SILDENAFIL CITRATE
     Dosage: 20 MG, 3X/DAY (1 TAB; 9AM/2PM/9PM)
     Dates: start: 201308
  4. PRILOSEC [Concomitant]
     Active Substance: OMEPRAZOLE MAGNESIUM
     Dosage: 20 MG, 1X/DAY (1 CAP; 9AM)
  5. ZOCOR [Concomitant]
     Active Substance: SIMVASTATIN
     Dosage: 10 MG, 1X/DAY (1 TAB; 9PM)
  6. PRINIVIL [Concomitant]
     Active Substance: LISINOPRIL
     Dosage: 5 MG, 1X/DAY (1 TAB; 9AM)
  7. LEVETIRACETAM. [Concomitant]
     Active Substance: LEVETIRACETAM
     Dosage: 2000 MG, 2X/DAY (1000MG; 2 TAB; 9AM 9PM)
  8. ZESTRIL [Concomitant]
     Active Substance: LISINOPRIL
     Dosage: 5 MG, 1X/DAY (1 TAB; 9AM)
  9. COUMADINE [Concomitant]
     Active Substance: WARFARIN SODIUM
     Dosage: 2 MG, 1X/DAY (2MG; 9PM)
  10. REVATIO [Suspect]
     Active Substance: SILDENAFIL CITRATE
     Indication: CARDIAC DISORDER
     Dosage: 25 MG, UNK
  11. ASPIRIN. [Concomitant]
     Active Substance: ASPIRIN
     Dosage: 162 MG, 1X/DAY (81MG; 2 TABS; 9AM)
  12. MAG-OX [Concomitant]
     Active Substance: MAGNESIUM OXIDE
     Dosage: 800 MG, 1X/DAY (400MG; 2 TABS; 9AM)
  13. TRAZODONE [Concomitant]
     Active Substance: TRAZODONE HYDROCHLORIDE
     Indication: SLEEP DISORDER
     Dosage: 50 MG, 1X/DAY (50MG; 1 TAB; 9PM )
  14. COUMADINE [Concomitant]
     Active Substance: WARFARIN SODIUM
     Dosage: 2 MG, 1X/DAY (1MG; 2 TAB; 9PM)
  15. KLOR-CON [Concomitant]
     Active Substance: POTASSIUM CHLORIDE
     Dosage: 20 MEQ, 1X/DAY (20 MEQ; 1 TAB; 9PM)
  16. AMARYL [Concomitant]
     Active Substance: GLIMEPIRIDE
     Dosage: 8 MG, 1X/DAY (4MG; 2 TABS; 9AM / 9PM)
  17. DEMADEX [Concomitant]
     Active Substance: TORSEMIDE
     Dosage: 40 MG, 1X/DAY (20 MG, 2 TABS; 9AM)
  18. REVATIO [Suspect]
     Active Substance: SILDENAFIL CITRATE
     Dosage: 20 MG, 3X/DAY (1 TAB; 9AM/2PM/9PM)
     Route: 048
     Dates: start: 201308
  19. PACERONE [Concomitant]
     Active Substance: AMIODARONE HYDROCHLORIDE
     Dosage: 200 MG, 1X/DAY (1 TAB; 9AM)
  20. VITAMIN C [Concomitant]
     Active Substance: ASCORBIC ACID
     Dosage: 500 MG, 1X/DAY (1 TAB; 9AM / 9PM)
  21. FOLIC ACID. [Concomitant]
     Active Substance: FOLIC ACID
     Dosage: 1 MG, 1X/DAY (1 TAB; 9AM)
  22. COREG [Concomitant]
     Active Substance: CARVEDILOL
     Dosage: 6.25 MG, 1X/DAY (1 TAB; 9AM / 9PM (WITH MEALS))
  23. DEMADEX [Concomitant]
     Active Substance: TORSEMIDE
     Dosage: 20 MG, 1X/DAY (20 MG; 1 TABS; 9PM)

REACTIONS (4)
  - Cerebral thrombosis [Recovered/Resolved]
  - Feeling abnormal [Recovered/Resolved]
  - Product use issue [Not Recovered/Not Resolved]
  - Seizure [Recovered/Resolved]

NARRATIVE: CASE EVENT DATE: 201308
